FAERS Safety Report 16178965 (Version 2)
Quarter: 2019Q2

REPORT INFORMATION
  Report Type: Report from Study
  Country: None (occurrence: BE)
  Receive Date: 20190410
  Receipt Date: 20190430
  Transmission Date: 20190711
  Serious: Yes (Other)
  Sender: FDA-Public Use
  Company Number: BE-ABBVIE-19S-013-2733981-00

PATIENT
  Sex: Male

DRUGS (12)
  1. SIPRALEXA [Concomitant]
     Active Substance: ESCITALOPRAM OXALATE
     Indication: PRODUCT USED FOR UNKNOWN INDICATION
  2. PROLOPA 250 [Concomitant]
     Indication: PARKINSON^S DISEASE
     Dosage: FORM STRENGTH: 200MG/50MG; UNIT DOSE: 1 TABLET 5 TIMES A DAY AND 0.75 TABLET ONCE A DAY
     Route: 048
  3. PROLOPA 250 [Concomitant]
     Dosage: FORM STRENGTH:200MG/50MG;UNIT DOSE:1TAB 5 TIMES/DAY, 0.75 TAB ONCE/DAY, RESCUE MEDICATION
     Route: 065
  4. APO-GO-PEN [Concomitant]
     Dosage: RESCUE MEDICATION
     Route: 058
  5. ARTANE [Concomitant]
     Active Substance: TRIHEXYPHENIDYL HYDROCHLORIDE
     Indication: PRODUCT USED FOR UNKNOWN INDICATION
     Route: 065
  6. DUODOPA [Suspect]
     Active Substance: CARBIDOPA\LEVODOPA
     Dosage: DOSES CONTINUOUSLY MONITORED AND ADAPTED
     Route: 050
     Dates: start: 20190401, end: 20190402
  7. DUODOPA [Suspect]
     Active Substance: CARBIDOPA\LEVODOPA
     Indication: PARKINSON^S DISEASE
     Dosage: MD= 7ML, CD= 3.4ML/HR DURING 16HRS, ED= 1ML
     Route: 050
     Dates: start: 20190401, end: 20190401
  8. DUODOPA [Suspect]
     Active Substance: CARBIDOPA\LEVODOPA
     Dosage: MD= 8.5ML, CD= 5.8ML/HR DURING 16HRS, ED= 2ML
     Route: 050
     Dates: start: 20190402, end: 20190402
  9. APO-GO-PEN [Concomitant]
     Indication: PARKINSON^S DISEASE
  10. CLEXANE [Concomitant]
     Active Substance: ENOXAPARIN SODIUM
     Indication: PRODUCT USED FOR UNKNOWN INDICATION
     Dosage: FORM STRENGTH: 40MG/0.4ML
     Route: 065
  11. DUODOPA [Suspect]
     Active Substance: CARBIDOPA\LEVODOPA
     Dosage: MD= 8.5ML, CD= 5.5ML/HR DURING 16HRS, ED= 2ML
     Route: 050
     Dates: start: 20190402
  12. TRAZODONE [Concomitant]
     Active Substance: TRAZODONE HYDROCHLORIDE
     Indication: PRODUCT USED FOR UNKNOWN INDICATION
     Route: 065

REACTIONS (8)
  - Nervousness [Not Recovered/Not Resolved]
  - Dyspnoea [Unknown]
  - Patient dissatisfaction with treatment [Unknown]
  - Vomiting [Unknown]
  - Pyrexia [Unknown]
  - Diarrhoea [Unknown]
  - Pneumonia aspiration [Unknown]
  - Oxygen saturation decreased [Unknown]

NARRATIVE: CASE EVENT DATE: 2019
